FAERS Safety Report 13023475 (Version 1)
Quarter: 2016Q4

REPORT INFORMATION
  Report Type: Spontaneous
  Country: US (occurrence: US)
  Receive Date: 20161212
  Receipt Date: 20161212
  Transmission Date: 20170207
  Serious: Yes (Congenital Anomaly)
  Sender: FDA-Public Use
  Company Number: None

PATIENT
  Age: 22 Year
  Sex: Female
  Weight: 57.15 kg

DRUGS (2)
  1. PRENATAL VITAMINS [Concomitant]
     Active Substance: VITAMINS
  2. IMODIUM A-D [Suspect]
     Active Substance: LOPERAMIDE HYDROCHLORIDE
     Indication: DIARRHOEA
     Dosage: ?          OTHER FREQUENCY:TWO TIMES;?
     Route: 048
     Dates: start: 20150516, end: 20150523

REACTIONS (2)
  - Hypospadias [None]
  - Maternal drugs affecting foetus [None]

NARRATIVE: CASE EVENT DATE: 20151216
